FAERS Safety Report 5773043-3 (Version None)
Quarter: 2008Q2

REPORT INFORMATION
  Report Type: 
  Country: None (occurrence: None)
  Receive Date: 20080611
  Receipt Date: 20080603
  Transmission Date: 20081010
  Serious: Yes (Hospitalization)
  Sender: FDA-Public Use
  Company Number: 2007BI014076

PATIENT
  Age: 60 Year
  Sex: Female

DRUGS (1)
  1. TYSABRI [Suspect]
     Indication: MULTIPLE SCLEROSIS
     Dosage: 300 MG;QM;IV
     Route: 042
     Dates: start: 20061103, end: 20070330

REACTIONS (6)
  - ANTIBODY TEST POSITIVE [None]
  - CANDIDIASIS [None]
  - DISEASE RECURRENCE [None]
  - GASTROENTERITIS [None]
  - HERPES ZOSTER [None]
  - MULTIPLE SCLEROSIS [None]
